FAERS Safety Report 16134887 (Version 1)
Quarter: 2019Q1

REPORT INFORMATION
  Report Type: Spontaneous
  Country: ES (occurrence: ES)
  Receive Date: 20190329
  Receipt Date: 20190329
  Transmission Date: 20190418
  Serious: Yes (Other)
  Sender: FDA-Public Use
  Company Number: ES-MYLANLABS-2019M1027865

PATIENT
  Age: 73 Year
  Sex: Male

DRUGS (1)
  1. IMATINIB. [Suspect]
     Active Substance: IMATINIB MESYLATE
     Indication: CHRONIC MYELOID LEUKAEMIA
     Dosage: 400 MILLIGRAM, QD
     Route: 065

REACTIONS (8)
  - Dysarthria [Unknown]
  - Muscle atrophy [Unknown]
  - Motor dysfunction [Unknown]
  - Muscle contractions involuntary [Unknown]
  - Dysphagia [Unknown]
  - Speech disorder [Unknown]
  - Amyotrophic lateral sclerosis [Unknown]
  - Hyperreflexia [Unknown]
